FAERS Safety Report 8033922-3 (Version None)
Quarter: 2012Q1

REPORT INFORMATION
  Report Type: 
  Country: None (occurrence: None)
  Receive Date: 20120110
  Receipt Date: 20120106
  Transmission Date: 20120608
  Serious: Yes (Death)
  Sender: FDA-Public Use
  Company Number: US-PFIZER INC-K201100833

PATIENT
  Age: 45 Year
  Sex: Male

DRUGS (3)
  1. GEODON [Suspect]
     Indication: BIPOLAR DISORDER
     Dosage: 120 MG, 2X/DAY
     Route: 048
     Dates: start: 20090101
  2. SONATA [Suspect]
     Indication: SLEEP DISORDER
     Dosage: UNK
     Route: 048
  3. DEPAKOTE [Suspect]
     Indication: BIPOLAR DISORDER
     Dosage: 250 MG, UNK
     Route: 048
     Dates: start: 20080101

REACTIONS (1)
  - DEATH [None]
